FAERS Safety Report 5255238-0 (Version None)
Quarter: 2007Q1

REPORT INFORMATION
  Report Type: 
  Country: None (occurrence: None)
  Receive Date: 20070228
  Receipt Date: 20070212
  Transmission Date: 20070707
  Serious: Yes (Hospitalization)
  Sender: FDA-Public Use
  Company Number: DSA_29412_2007

PATIENT
  Age: 80 Year
  Sex: Female

DRUGS (6)
  1. LORAZEPAM [Suspect]
     Dosage: 1 MG Q DAY PO
     Route: 048
     Dates: start: 20060502, end: 20060530
  2. LORAZEPAM [Suspect]
     Dosage: 0.5 MG Q DAY PO
     Route: 048
     Dates: start: 20060531, end: 20060605
  3. ZOLOFT [Suspect]
     Dosage: 25 MG Q DAY PO
     Route: 048
     Dates: start: 20060503, end: 20060507
  4. ZOLOFT [Suspect]
     Dosage: 50 MG Q DAY PO
     Route: 048
     Dates: start: 20060508, end: 20060511
  5. ZOLOFT [Suspect]
     Dosage: 75 MG Q DAY PO
     Route: 048
     Dates: start: 20060512, end: 20060514
  6. ZOLOFT [Suspect]
     Dosage: 25 MG Q DAY PO
     Route: 048
     Dates: start: 20060515, end: 20060516

REACTIONS (4)
  - FATIGUE [None]
  - GAIT DISTURBANCE [None]
  - INAPPROPRIATE ANTIDIURETIC HORMONE SECRETION [None]
  - SEDATION [None]
